FAERS Safety Report 19354229 (Version 5)
Quarter: 2021Q3

REPORT INFORMATION
  Report Type: Report from Study
  Country: US (occurrence: US)
  Receive Date: 20210531
  Receipt Date: 20210922
  Transmission Date: 20211014
  Serious: No
  Sender: FDA-Public Use
  Company Number: NVSC2021US113529

PATIENT
  Sex: Male

DRUGS (1)
  1. ENTRESTO [Suspect]
     Active Substance: SACUBITRIL\VALSARTAN
     Indication: CARDIAC FAILURE
     Dosage: UNK UNK, BID
     Route: 048

REACTIONS (8)
  - Anxiety [Not Recovered/Not Resolved]
  - Dyspnoea [Recovering/Resolving]
  - Depression [Not Recovered/Not Resolved]
  - Weight decreased [Unknown]
  - Memory impairment [Unknown]
  - Nightmare [Unknown]
  - Insomnia [Unknown]
  - Weight increased [Unknown]
